FAERS Safety Report 9868688 (Version 2)
Quarter: 2014Q3

REPORT INFORMATION
  Report Type: Spontaneous
  Country: US (occurrence: US)
  Receive Date: 20140204
  Receipt Date: 20140910
  Transmission Date: 20150326
  Serious: Yes (Hospitalization)
  Sender: FDA-Public Use
  Company Number: US-009507513-1402USA001287

PATIENT
  Sex: Female
  Weight: 60.77 kg

DRUGS (1)
  1. NUVARING [Suspect]
     Active Substance: ETHINYL ESTRADIOL\ETONOGESTREL
     Indication: CONTRACEPTION
     Dosage: UNK
     Route: 067
     Dates: end: 20050626

REACTIONS (14)
  - Angioplasty [Unknown]
  - Thrombectomy [Unknown]
  - Anaemia [Unknown]
  - Vomiting [Recovered/Resolved]
  - Thrombectomy [Unknown]
  - Vena cava filter insertion [Unknown]
  - Blood glucose increased [Unknown]
  - May-Thurner syndrome [Unknown]
  - Antiphospholipid antibodies positive [Unknown]
  - Pyuria [Unknown]
  - Deep vein thrombosis [Unknown]
  - Nausea [Recovered/Resolved]
  - Deep vein thrombosis [Unknown]
  - Venous stent insertion [Unknown]

NARRATIVE: CASE EVENT DATE: 200506
